FAERS Safety Report 11843576 (Version 7)
Quarter: 2016Q2

REPORT INFORMATION
  Report Type: Spontaneous
  Country: US (occurrence: US)
  Receive Date: 20151217
  Receipt Date: 20160520
  Transmission Date: 20160815
  Serious: Yes (Other)
  Sender: FDA-Public Use
  Company Number: US-ASTRAZENECA-2015SF23375

PATIENT
  Age: 3489 Week
  Sex: Male
  Weight: 81.6 kg

DRUGS (26)
  1. LISINOPRIL. [Suspect]
     Active Substance: LISINOPRIL
     Indication: HYPERTENSION
     Route: 048
     Dates: start: 20151202, end: 20160221
  2. LOSARTAN. [Suspect]
     Active Substance: LOSARTAN
     Indication: PRODUCT USED FOR UNKNOWN INDICATION
     Route: 048
     Dates: start: 2015, end: 20150226
  3. CARVEDILOL. [Concomitant]
     Active Substance: CARVEDILOL
     Indication: BIOPSY BLOOD VESSEL ABNORMAL
     Route: 048
     Dates: start: 20151202
  4. AMLODIPINE [Suspect]
     Active Substance: AMLODIPINE BESYLATE
     Indication: PRODUCT USED FOR UNKNOWN INDICATION
     Route: 048
     Dates: start: 20151202, end: 20160125
  5. RANITIDINE. [Concomitant]
     Active Substance: RANITIDINE
     Indication: GASTRIC DISORDER
     Route: 048
     Dates: start: 20151202
  6. CORTICOSTEROIDS [Concomitant]
     Active Substance: CORTICOSTEROID NOS
  7. NITROSTAT [Concomitant]
     Active Substance: NITROGLYCERIN
     Route: 060
     Dates: start: 20160204
  8. BRILINTA [Suspect]
     Active Substance: TICAGRELOR
     Indication: PERCUTANEOUS CORONARY INTERVENTION
     Route: 048
     Dates: start: 20151202
  9. BRILINTA [Suspect]
     Active Substance: TICAGRELOR
     Indication: CATHETERISATION CARDIAC
     Route: 048
     Dates: start: 20151203, end: 20160413
  10. RANITIDINE. [Concomitant]
     Active Substance: RANITIDINE
     Indication: ABDOMINAL DISCOMFORT
     Route: 048
     Dates: start: 20151202
  11. RANITIDINE. [Concomitant]
     Active Substance: RANITIDINE
     Indication: GASTRITIS PROPHYLAXIS
     Route: 048
     Dates: start: 20151202
  12. BRILINTA [Suspect]
     Active Substance: TICAGRELOR
     Indication: ACUTE CORONARY SYNDROME
     Route: 048
     Dates: start: 20151202
  13. BRILINTA [Suspect]
     Active Substance: TICAGRELOR
     Indication: CATHETERISATION CARDIAC
     Route: 048
     Dates: start: 20151202
  14. BRILINTA [Suspect]
     Active Substance: TICAGRELOR
     Indication: STENT PLACEMENT
     Route: 048
     Dates: start: 20151202
  15. BRILINTA [Suspect]
     Active Substance: TICAGRELOR
     Indication: ACUTE CORONARY SYNDROME
     Route: 048
     Dates: start: 20151203, end: 20160413
  16. BRILINTA [Suspect]
     Active Substance: TICAGRELOR
     Indication: STENT PLACEMENT
     Route: 048
     Dates: start: 20151203, end: 20160413
  17. LOSARTAN. [Suspect]
     Active Substance: LOSARTAN
     Indication: PRODUCT USED FOR UNKNOWN INDICATION
     Route: 048
     Dates: start: 20160226, end: 20160226
  18. VITAMIN B12 [Concomitant]
     Active Substance: CYANOCOBALAMIN
     Indication: ANAEMIA VITAMIN B12 DEFICIENCY
  19. BRILINTA [Suspect]
     Active Substance: TICAGRELOR
     Indication: PERCUTANEOUS CORONARY INTERVENTION
     Route: 048
     Dates: start: 20151203, end: 20160413
  20. CARVEDILOL. [Concomitant]
     Active Substance: CARVEDILOL
     Indication: CORONARY ARTERY DISEASE
     Route: 048
     Dates: start: 20151202
  21. CARVEDILOL. [Concomitant]
     Active Substance: CARVEDILOL
     Indication: VASODILATATION
     Route: 048
     Dates: start: 20151202
  22. ATORVASTATIN [Concomitant]
     Active Substance: ATORVASTATIN
     Indication: HYPERLIPIDAEMIA
     Route: 048
     Dates: start: 20151202
  23. ISOSORBIDE MONONITRATE. [Concomitant]
     Active Substance: ISOSORBIDE MONONITRATE
     Route: 048
     Dates: start: 20160120
  24. ATORVASTATIN [Concomitant]
     Active Substance: ATORVASTATIN
     Indication: CORONARY ARTERY DISEASE
     Route: 048
     Dates: start: 20151202
  25. ASPIRIN. [Concomitant]
     Active Substance: ASPIRIN
     Indication: CORONARY ARTERY DISEASE
     Route: 048
     Dates: start: 20151202
  26. ZANTAC [Concomitant]
     Active Substance: RANITIDINE HYDROCHLORIDE
     Indication: GASTROOESOPHAGEAL REFLUX DISEASE
     Route: 048
     Dates: start: 20151202

REACTIONS (22)
  - Dyspnoea [Recovered/Resolved]
  - Sleep disorder [Not Recovered/Not Resolved]
  - Oral mucosal blistering [Unknown]
  - Headache [Recovering/Resolving]
  - Urticaria [Unknown]
  - Peripheral swelling [Unknown]
  - Insomnia [Unknown]
  - Angioedema [Recovering/Resolving]
  - Thrombosis [Recovered/Resolved]
  - Emotional distress [Unknown]
  - Weight increased [Unknown]
  - Wheezing [Unknown]
  - Cough [Recovered/Resolved]
  - Haemorrhage [Unknown]
  - Epistaxis [Recovering/Resolving]
  - Intentional product misuse [Unknown]
  - Head discomfort [Not Recovered/Not Resolved]
  - Dyspepsia [Unknown]
  - Sinus disorder [Unknown]
  - Activities of daily living impaired [Recovering/Resolving]
  - Rash [Recovering/Resolving]
  - Contusion [Unknown]

NARRATIVE: CASE EVENT DATE: 20151202
